FAERS Safety Report 4425346-2 (Version None)
Quarter: 2004Q3

REPORT INFORMATION
  Report Type: 
  Country: None (occurrence: None)
  Receive Date: 20040719
  Receipt Date: 20030623
  Transmission Date: 20050211
  Serious: Yes (Other)
  Sender: FDA-Public Use
  Company Number: 174762

PATIENT
  Age: 36 Year
  Sex: Female

DRUGS (5)
  1. AVONEX [Suspect]
     Indication: MULTIPLE SCLEROSIS
     Dosage: 30 MCG QW IM
     Route: 030
     Dates: start: 20010101, end: 20030601
  2. RITALIN [Concomitant]
  3. WELLBUTRIN [Concomitant]
  4. ZYRTEC [Concomitant]
  5. ALLEGRA [Concomitant]

REACTIONS (3)
  - ABDOMINAL PAIN [None]
  - ABORTION SPONTANEOUS [None]
  - VAGINAL HAEMORRHAGE [None]
